FAERS Safety Report 4457835-9 (Version None)
Quarter: 2004Q3

REPORT INFORMATION
  Report Type: 
  Country: None (occurrence: None)
  Receive Date: 20040924
  Receipt Date: 20030605
  Transmission Date: 20050211
  Serious: Yes (Hospitalization, Disabling, Other)
  Sender: FDA-Public Use
  Company Number: US-MERCK-0306USA00827

PATIENT
  Age: 50 Year
  Sex: Female
  Weight: 124 kg

DRUGS (16)
  1. DARVOCET-N 100 [Concomitant]
     Route: 065
  2. ALBUTEROL [Concomitant]
     Route: 055
  3. XANAX [Concomitant]
     Route: 065
  4. XANAX [Concomitant]
     Route: 065
  5. NORVASC [Concomitant]
     Route: 065
  6. ST. JOSEPH ADULT CHEWABLE ASPIRIN [Concomitant]
     Route: 065
  7. LOTENSIN [Concomitant]
     Route: 065
  8. ALLEGRA [Concomitant]
     Route: 065
  9. FLOVENT [Concomitant]
     Route: 065
  10. MOBIC [Concomitant]
     Route: 065
  11. PAXIL [Concomitant]
     Route: 065
  12. PAXIL [Concomitant]
     Route: 065
  13. VIOXX [Suspect]
     Route: 048
  14. SEREVENT [Concomitant]
     Route: 055
  15. RESTORIL [Concomitant]
     Route: 065
  16. UNIPHYL [Concomitant]
     Route: 065

REACTIONS (6)
  - ADVERSE EVENT [None]
  - ATRIAL FIBRILLATION [None]
  - CHEST PAIN [None]
  - CONGENITAL ATRIAL SEPTAL DEFECT [None]
  - FLUID RETENTION [None]
  - PAIN IN EXTREMITY [None]
